FAERS Safety Report 6087324-X (Version None)
Quarter: 2009Q1

REPORT INFORMATION
  Report Type: 
  Country: None (occurrence: None)
  Receive Date: 20090223
  Receipt Date: 20090220
  Transmission Date: 20090719
  Serious: Yes (Death)
  Sender: FDA-Public Use
  Company Number: A0769815A

PATIENT
  Age: 91 Year
  Sex: Male
  Weight: 50 kg

DRUGS (4)
  1. SERETIDE [Suspect]
     Indication: LUNG DISORDER
     Dosage: 1PUFF PER DAY
     Route: 055
     Dates: start: 19990101, end: 20090116
  2. BRONDILAT [Concomitant]
     Dates: start: 20060101, end: 20090116
  3. FLORATIL [Concomitant]
     Dates: start: 20050101, end: 20090116
  4. PIRENOXINE SODIUM [Concomitant]
     Dosage: 1DROP PER DAY
     Route: 047
     Dates: start: 20050101, end: 20090116

REACTIONS (1)
  - LUNG DISORDER [None]
